FAERS Safety Report 5887569-5 (Version None)
Quarter: 2008Q3

REPORT INFORMATION
  Report Type: 
  Country: None (occurrence: None)
  Receive Date: 20080918
  Receipt Date: 20080911
  Transmission Date: 20090109
  Serious: Yes (Death, Other)
  Sender: FDA-Public Use
  Company Number: PHHY2008JP19657

PATIENT
  Sex: Male
  Weight: 68 kg

DRUGS (6)
  1. EXJADE [Suspect]
     Indication: IRON OVERLOAD
     Dosage: 1000 MG/DAY
     Route: 048
     Dates: start: 20080723, end: 20080804
  2. EXJADE [Suspect]
     Dosage: 500 MG/DAY
     Route: 048
     Dates: start: 20080813, end: 20080814
  3. ADONA [Concomitant]
     Dosage: 30 MG
     Route: 048
     Dates: start: 20080723, end: 20080822
  4. MUCOSTA [Concomitant]
     Dosage: 300 MG
     Route: 048
     Dates: start: 20080723, end: 20080822
  5. PRIMOBOLAN [Concomitant]
     Dosage: 20 MG
     Route: 048
     Dates: start: 20080723, end: 20080822
  6. MINOCYCLINE HCL [Concomitant]
     Dosage: 200 MG
     Route: 048
     Dates: start: 20080806, end: 20080813

REACTIONS (8)
  - CEREBRAL HAEMORRHAGE [None]
  - HAEMATOCRIT DECREASED [None]
  - HAEMOGLOBIN DECREASED [None]
  - NEUTROPHIL COUNT DECREASED [None]
  - PLATELET COUNT DECREASED [None]
  - RASH [None]
  - RED BLOOD CELL COUNT DECREASED [None]
  - WHITE BLOOD CELL COUNT DECREASED [None]
